FAERS Safety Report 5193503-6 (Version None)
Quarter: 2006Q4

REPORT INFORMATION
  Report Type: 
  Country: None (occurrence: None)
  Receive Date: 20061228
  Receipt Date: 20060615
  Transmission Date: 20070319
  Serious: No
  Sender: FDA-Public Use
  Company Number: US-GLAXOSMITHKLINE-A0609165A

PATIENT
  Age: 81 Year
  Sex: Female

DRUGS (2)
  1. FLONASE [Suspect]
     Indication: POSTNASAL DRIP
     Dosage: 2SPR PER DAY
     Route: 045
     Dates: start: 20060614
  2. FOSAMAX [Concomitant]

REACTIONS (5)
  - BURNING SENSATION [None]
  - DRY SKIN [None]
  - EAR DISCOMFORT [None]
  - HEADACHE [None]
  - NASAL CONGESTION [None]
